FAERS Safety Report 9270664 (Version 1)
Quarter: 2013Q2

REPORT INFORMATION
  Report Type: Spontaneous
  Country: GB (occurrence: GB)
  Receive Date: 20130505
  Receipt Date: 20130505
  Transmission Date: 20140414
  Serious: Yes (Disabling)
  Sender: FDA-Public Use
  Company Number: PHHY2013GB042946

PATIENT
  Age: 54 Year
  Sex: Female
  Weight: 78 kg

DRUGS (3)
  1. TACROLIMUS [Suspect]
     Dosage: 1 MG, BID
     Route: 048
     Dates: start: 2009, end: 201304
  2. OMEPRAZOLE [Concomitant]
  3. PREDNISOLONE [Concomitant]
     Dosage: 1 MG, QD

REACTIONS (7)
  - Fatigue [Recovered/Resolved]
  - Abdominal discomfort [Recovered/Resolved]
  - Uveitis [Unknown]
  - Influenza like illness [Recovered/Resolved]
  - Abdominal pain [Recovered/Resolved]
  - Arthralgia [Recovered/Resolved]
  - Feeling abnormal [Recovered/Resolved]
